FAERS Safety Report 4873194-1 (Version None)
Quarter: 2005Q4

REPORT INFORMATION
  Report Type: 
  Country: None (occurrence: None)
  Receive Date: 20051201
  Receipt Date: 20050803
  Transmission Date: 20060501
  Serious: No
  Sender: FDA-Public Use
  Company Number: 2005PV000882

PATIENT
  Age: 66 Year
  Sex: Male
  Weight: 103.4201 kg

DRUGS (8)
  1. BYETTA [Suspect]
     Indication: DIABETES MELLITUS NON-INSULIN-DEPENDENT
     Dosage: 5 MCG, BID, SC
     Route: 058
     Dates: start: 20050729
  2. GLUCOPHAGE [Concomitant]
  3. AMARYL [Concomitant]
  4. ACTOS [Concomitant]
  5. LIPITOR [Concomitant]
  6. ZETIA [Concomitant]
  7. AVAPRO [Concomitant]
  8. AGRINOX [Concomitant]

REACTIONS (1)
  - BLOOD GLUCOSE INCREASED [None]
